FAERS Safety Report 5235649-X (Version None)
Quarter: 2007Q1

REPORT INFORMATION
  Report Type: 
  Country: None (occurrence: None)
  Receive Date: 20070212
  Receipt Date: 20070208
  Transmission Date: 20070707
  Serious: Yes (Hospitalization)
  Sender: FDA-Public Use
  Company Number: JP-GLAXOSMITHKLINE-B0388432A

PATIENT
  Sex: Male

DRUGS (19)
  1. EPIVIR [Suspect]
     Indication: HIV INFECTION
     Dosage: 300MG PER DAY
     Route: 048
     Dates: start: 20040417, end: 20040614
  2. EPIVIR [Suspect]
     Dosage: 300MG PER DAY
     Route: 048
     Dates: start: 20040708, end: 20040812
  3. COMBIVIR [Suspect]
     Indication: HIV INFECTION
     Dosage: 2U PER DAY
     Route: 048
     Dates: start: 20040304, end: 20040416
  4. ZIAGEN [Suspect]
     Indication: HIV INFECTION
     Dosage: 600MG PER DAY
     Route: 048
     Dates: start: 20040421, end: 20040614
  5. VIDEX EC [Suspect]
     Indication: HIV INFECTION
     Dosage: 400MG PER DAY
     Route: 048
     Dates: start: 20041206, end: 20050526
  6. ZERIT [Suspect]
     Indication: HIV INFECTION
     Dosage: 60MG PER DAY
     Route: 048
     Dates: start: 20040417
  7. NORVIR [Suspect]
     Indication: HIV INFECTION
     Dosage: 100MG PER DAY
     Route: 048
     Dates: start: 20041224, end: 20050526
  8. STOCRIN [Suspect]
     Indication: HIV INFECTION
     Dosage: 600MG PER DAY
     Route: 048
     Dates: start: 20040304, end: 20040614
  9. STOCRIN [Suspect]
     Dosage: 600MG PER DAY
     Route: 048
     Dates: start: 20040708, end: 20040812
  10. REYATAZ [Suspect]
     Indication: HIV INFECTION
     Route: 048
     Dates: start: 20041206, end: 20050526
  11. VIREAD [Suspect]
     Indication: HIV INFECTION
     Dosage: 300MG PER DAY
     Route: 048
     Dates: start: 20040708, end: 20040812
  12. VIREAD [Suspect]
     Dosage: 300MG PER DAY
     Route: 048
     Dates: start: 20041206, end: 20050526
  13. KALETRA [Suspect]
     Dates: start: 20050815
  14. LOXONIN [Concomitant]
     Indication: PAIN
     Route: 048
     Dates: start: 20040401
  15. URSO [Concomitant]
     Indication: BLOOD ALKALINE PHOSPHATASE INCREASED
     Dosage: 200MG THREE TIMES PER DAY
     Route: 048
     Dates: start: 20040401, end: 20040406
  16. LENDORMIN [Concomitant]
     Indication: INSOMNIA
     Route: 048
     Dates: start: 20040401
  17. TRYPTANOL [Concomitant]
     Indication: INSOMNIA
     Dosage: 10MG THREE TIMES PER DAY
     Route: 048
     Dates: start: 20040401, end: 20040420
  18. AMOBAN [Concomitant]
     Indication: INSOMNIA
     Route: 048
     Dates: start: 20040715, end: 20050331
  19. INTEBAN SP [Concomitant]
     Indication: PAIN
     Route: 048
     Dates: start: 20040902

REACTIONS (6)
  - ALANINE AMINOTRANSFERASE INCREASED [None]
  - ASPARTATE AMINOTRANSFERASE INCREASED [None]
  - BLOOD ALKALINE PHOSPHATASE INCREASED [None]
  - BLOOD LACTATE DEHYDROGENASE INCREASED [None]
  - GAMMA-GLUTAMYLTRANSFERASE INCREASED [None]
  - HYPOAESTHESIA [None]
